FAERS Safety Report 5731913-6 (Version None)
Quarter: 2008Q2

REPORT INFORMATION
  Report Type: 
  Country: None (occurrence: None)
  Receive Date: 20080508
  Receipt Date: 20080429
  Transmission Date: 20081010
  Serious: Yes (Hospitalization)
  Sender: FDA-Public Use
  Company Number: US-ROCHE-556373

PATIENT
  Sex: Female

DRUGS (2)
  1. PEG-INTERFERON A-2A (RO 25-8310) [Suspect]
     Dosage: FORM: PRE-FILLED SYRINGE
     Route: 065
     Dates: start: 20080224
  2. RIBAVIRIN [Suspect]
     Route: 065
     Dates: start: 20080224

REACTIONS (2)
  - HEADACHE [None]
  - WHITE BLOOD CELL COUNT INCREASED [None]
